FAERS Safety Report 8505239-1 (Version None)
Quarter: 2012Q2

REPORT INFORMATION
  Report Type: 
  Country: None (occurrence: None)
  Receive Date: 20120405
  Receipt Date: 20100526
  Transmission Date: 20120825
  Serious: Yes (Hospitalization)
  Sender: FDA-Public Use
  Company Number: PHHY2010US34650

PATIENT
  Age: 83 Year
  Sex: Female
  Weight: 90.7 kg

DRUGS (6)
  1. HYDROCHLOROTHIAZIDE [Concomitant]
  2. MESTINON [Concomitant]
  3. ENALAPRIL MALEATE [Concomitant]
  4. RECLAST [Suspect]
     Indication: OSTEOPOROSIS
     Dosage: 5 MG/ 1 YEAR,INTRAVENOUS
     Route: 042
  5. ASPIRIN [Concomitant]
  6. CRESTOR [Concomitant]

REACTIONS (2)
  - RENAL FAILURE ACUTE [None]
  - MALAISE [None]
